FAERS Safety Report 6250330-6 (Version None)
Quarter: 2009Q2

REPORT INFORMATION
  Report Type: 
  Country: None (occurrence: None)
  Receive Date: 20090630
  Receipt Date: 20090619
  Transmission Date: 20091009
  Serious: Yes (Disabling)
  Sender: FDA-Public Use
  Company Number: BR-BAYER-200917812LA

PATIENT
  Age: 41 Year
  Sex: Female

DRUGS (3)
  1. BETAFERON [Suspect]
     Indication: MULTIPLE SCLEROSIS
     Dosage: TOTAL DAILY DOSE: 9.6 MIU
     Route: 058
     Dates: start: 20080101
  2. RETEMIC [Concomitant]
     Indication: URINARY INCONTINENCE
     Dosage: 1 TABLET EVERY 6 HOURS
     Route: 048
     Dates: start: 20040101
  3. PARACETAMOL [Concomitant]
     Indication: PREMEDICATION
     Dosage: 1 TABLET/1 HOUR BEFORE EACH INJECTION.
     Route: 048
     Dates: start: 20080101

REACTIONS (4)
  - FEELING COLD [None]
  - JOINT RANGE OF MOTION DECREASED [None]
  - PARAPARESIS [None]
  - SENSATION OF HEAVINESS [None]
